FAERS Safety Report 8720718 (Version 2)
Quarter: 2015Q2

REPORT INFORMATION
  Report Type: Report from Study
  Country: US (occurrence: US)
  Receive Date: 20120813
  Receipt Date: 20150402
  Transmission Date: 20150821
  Serious: Yes (Hospitalization)
  Sender: FDA-Public Use
  Company Number: US-ROCHE-1099775

PATIENT
  Sex: Male

DRUGS (14)
  1. ACTIVASE [Suspect]
     Active Substance: ALTEPLASE
     Route: 065
  2. NITRO (GLYCERYL TRINITRATE) [Concomitant]
     Route: 060
  3. PHENERGAN [Concomitant]
     Active Substance: PROMETHAZINE HYDROCHLORIDE
     Route: 042
  4. HEPARIN [Concomitant]
     Active Substance: HEPARIN SODIUM
     Route: 042
  5. LOPRESSOR [Concomitant]
     Active Substance: METOPROLOL TARTRATE
     Route: 048
  6. PHENERGAN [Concomitant]
     Active Substance: PROMETHAZINE HYDROCHLORIDE
     Route: 042
  7. MICRO K EXTENCAPS [Concomitant]
     Route: 048
  8. ACTIVASE [Suspect]
     Active Substance: ALTEPLASE
     Indication: ACUTE MYOCARDIAL INFARCTION
     Route: 065
  9. MICRO K EXTENCAPS [Concomitant]
     Route: 048
  10. TYLENOL [Concomitant]
     Active Substance: ACETAMINOPHEN
  11. GLYCERYL TRINITRATE [Concomitant]
     Active Substance: NITROGLYCERIN
     Dosage: 1 INCH
     Route: 065
  12. LOPRESSOR [Concomitant]
     Active Substance: METOPROLOL TARTRATE
     Route: 048
  13. LASIX [Concomitant]
     Active Substance: FUROSEMIDE
     Route: 042
  14. MORPHINE [Concomitant]
     Active Substance: MORPHINE

REACTIONS (10)
  - Chest discomfort [Unknown]
  - Headache [Unknown]
  - Pain [Unknown]
  - Anxiety [Recovered/Resolved]
  - Hypotension [Unknown]
  - Fatigue [Unknown]
  - Hyperhidrosis [Unknown]
  - Somnolence [Unknown]
  - Snoring [Unknown]
  - Nausea [Unknown]
